FAERS Safety Report 5485878-5 (Version None)
Quarter: 2007Q4

REPORT INFORMATION
  Report Type: 
  Country: None (occurrence: None)
  Receive Date: 20071015
  Receipt Date: 20071003
  Transmission Date: 20080405
  Serious: Yes (Other)
  Sender: FDA-Public Use
  Company Number: US-SANOFI-SYNTHELABO-A03200705736

PATIENT
  Sex: Female

DRUGS (5)
  1. AMBIEN [Suspect]
     Indication: INSOMNIA
     Route: 048
     Dates: start: 20050801, end: 20070329
  2. SYNTHROID [Concomitant]
     Route: 048
  3. CYMBALTA [Concomitant]
     Route: 048
  4. WELLBUTRIN XL [Concomitant]
     Route: 048
  5. FIORINAL [Suspect]
     Dosage: UNK
     Route: 048

REACTIONS (3)
  - DRUG LEVEL INCREASED [None]
  - IMPAIRED DRIVING ABILITY [None]
  - ROAD TRAFFIC ACCIDENT [None]
